FAERS Safety Report 6142981-4 (Version None)
Quarter: 2009Q2

REPORT INFORMATION
  Report Type: 
  Country: None (occurrence: None)
  Receive Date: 20090403
  Receipt Date: 20090324
  Transmission Date: 20091009
  Serious: Yes (Hospitalization)
  Sender: FDA-Public Use
  Company Number: FR-ROCHE-623810

PATIENT
  Age: 13 Year
  Sex: Female

DRUGS (2)
  1. APRANAX [Suspect]
     Dosage: DOSE : 12 DOSE FORMS; FREQUENCY : ONCE
     Route: 048
     Dates: start: 20080508, end: 20080508
  2. DI-ANTALVIC [Suspect]
     Dosage: DOSE : 4 DOSE FORMS; FREQUENCY : ONCE
     Route: 048
     Dates: start: 20080508, end: 20080508

REACTIONS (2)
  - DRUG LEVEL INCREASED [None]
  - HYPOPROTHROMBINAEMIA [None]
